FAERS Safety Report 7459750-5 (Version None)
Quarter: 2011Q2

REPORT INFORMATION
  Report Type: 
  Country: None (occurrence: None)
  Receive Date: 20110427
  Receipt Date: 20110418
  Transmission Date: 20111010
  Serious: Yes (Other)
  Sender: FDA-Public Use
  Company Number: 2011SP017384

PATIENT
  Age: 28 Year
  Sex: Female

DRUGS (1)
  1. NEXPLANON (ETONOGESTREL /01502301/) [Suspect]
     Indication: CONTRACEPTION
     Dosage: 68 MG; SBDE
     Route: 059

REACTIONS (2)
  - SCAR [None]
  - DEVICE BREAKAGE [None]
